FAERS Safety Report 7527032-9 (Version None)
Quarter: 2011Q2

REPORT INFORMATION
  Report Type: 
  Country: None (occurrence: None)
  Receive Date: 20110606
  Receipt Date: 20110531
  Transmission Date: 20111010
  Serious: Yes (Hospitalization)
  Sender: FDA-Public Use
  Company Number: US-B.I. PHARMACEUTICALS,INC./RIDGEFIELD-2011-BP-14443BP

PATIENT
  Age: 83 Year
  Sex: Male

DRUGS (7)
  1. PRADAXA [Suspect]
     Dates: start: 20110201, end: 20110401
  2. OTC VITAMINS [Concomitant]
  3. SIMVASTATIN [Concomitant]
  4. ASPIRIN [Concomitant]
  5. DIGOXIN [Concomitant]
  6. LASIX [Concomitant]
  7. AMLODIPINE [Concomitant]

REACTIONS (3)
  - FAECES DISCOLOURED [None]
  - ASTHENIA [None]
  - GASTROINTESTINAL HAEMORRHAGE [None]
